FAERS Safety Report 8624369-7 (Version None)
Quarter: 2012Q3

REPORT INFORMATION
  Report Type: 
  Country: None (occurrence: None)
  Receive Date: 20120827
  Receipt Date: 20120822
  Transmission Date: 20120928
  Serious: Yes (Death, Life-Threatening)
  Sender: FDA-Public Use
  Company Number: BG-ASTRAZENECA-2012SE57643

PATIENT
  Age: 77 Year
  Sex: Male
  Weight: 65 kg

DRUGS (3)
  1. BRILINTA [Suspect]
     Indication: ACUTE CORONARY SYNDROME
     Dosage: 180 MG LOADING DOSE
     Route: 048
     Dates: start: 20120813, end: 20120813
  2. ASPIRIN [Concomitant]
     Route: 048
  3. ARIXTRA [Concomitant]
     Route: 058
     Dates: start: 20120813

REACTIONS (3)
  - THROMBOSIS IN DEVICE [None]
  - CARDIOGENIC SHOCK [None]
  - VENTRICULAR FIBRILLATION [None]
